FAERS Safety Report 14491726 (Version 1)
Quarter: 2018Q1

REPORT INFORMATION
  Report Type: Spontaneous
  Country: US (occurrence: US)
  Receive Date: 20180205
  Receipt Date: 20180205
  Transmission Date: 20180509
  Serious: No
  Sender: FDA-Public Use
  Company Number: None

PATIENT
  Age: 61 Year
  Sex: Male

DRUGS (1)
  1. COSENTYX [Suspect]
     Active Substance: SECUKINUMAB
     Indication: ILL-DEFINED DISORDER
     Route: 058
     Dates: start: 20171019, end: 20171223

REACTIONS (2)
  - Malaise [None]
  - Condition aggravated [None]

NARRATIVE: CASE EVENT DATE: 20171223
